FAERS Safety Report 23640638 (Version 2)
Quarter: 2024Q2

REPORT INFORMATION
  Report Type: Spontaneous
  Country: US (occurrence: US)
  Receive Date: 20240318
  Receipt Date: 20240410
  Transmission Date: 20240716
  Serious: Yes (Hospitalization, Other)
  Sender: FDA-Public Use
  Company Number: US-BRISTOL-MYERS SQUIBB COMPANY-2024-037576

PATIENT
  Age: 69 Year
  Sex: Male

DRUGS (2)
  1. REVLIMID [Suspect]
     Active Substance: LENALIDOMIDE
     Indication: Plasma cell myeloma
     Dosage: DAILY FOR 21 DAYS EVERY 28 DAYS
     Route: 048
     Dates: start: 20220309
  2. REVLIMID [Suspect]
     Active Substance: LENALIDOMIDE
     Route: 048
     Dates: start: 20220310

REACTIONS (12)
  - Intervertebral discitis [Unknown]
  - Loss of consciousness [Unknown]
  - Nausea [Unknown]
  - Vomiting [Unknown]
  - Dehydration [Unknown]
  - Diarrhoea [Unknown]
  - Arthritis [Unknown]
  - Gout [Unknown]
  - Plasma cell myeloma [Unknown]
  - Swelling [Unknown]
  - Asthenia [Unknown]
  - Weight decreased [Unknown]

NARRATIVE: CASE EVENT DATE: 20231201
